FAERS Safety Report 21919804 (Version 1)
Quarter: 2023Q1

REPORT INFORMATION
  Report Type: Other
  Country: CA (occurrence: CA)
  Receive Date: 20230127
  Receipt Date: 20230127
  Transmission Date: 20230417
  Serious: Yes (Other)
  Sender: FDA-Public Use
  Company Number: CA-CELLTRION INC.-2023CA001261

PATIENT

DRUGS (6)
  1. RITUXIMAB [Suspect]
     Active Substance: RITUXIMAB
     Indication: Haematoma
     Dosage: 375.0 MG/M2, 1 EVERY 1 WEEKS
     Route: 041
  2. CYCLOPHOSPHAMIDE [Suspect]
     Active Substance: CYCLOPHOSPHAMIDE
     Indication: Haematoma
     Dosage: 750.0 MG/M2
     Route: 065
  3. EMICIZUMAB [Suspect]
     Active Substance: EMICIZUMAB
     Indication: Acquired haemophilia
     Dosage: 1.5 MG/KG, 1 EVERY 1 WEEKS
     Route: 058
  4. EMICIZUMAB [Suspect]
     Active Substance: EMICIZUMAB
     Dosage: 3.0 MG/KG, 1 EVERY 1 WEEKS
     Route: 058
  5. FILGRASTIM [Concomitant]
     Active Substance: FILGRASTIM
     Indication: Neutropenia
  6. PREDNISONE [Concomitant]
     Active Substance: PREDNISONE
     Indication: Haematoma
     Dosage: 1.0 MG/KG
     Route: 065

REACTIONS (5)
  - Coronavirus infection [Unknown]
  - Respiratory syncytial virus infection [Unknown]
  - Scrotal cellulitis [Unknown]
  - Off label use [Unknown]
  - Off label use [Unknown]
